FAERS Safety Report 4590218-X (Version None)
Quarter: 2005Q1

REPORT INFORMATION
  Report Type: 
  Country: None (occurrence: None)
  Receive Date: 20050217
  Receipt Date: 20050204
  Transmission Date: 20050727
  Serious: Yes (Hospitalization)
  Sender: FDA-Public Use
  Company Number: HQWYE903727JAN05

PATIENT
  Age: 58 Year
  Sex: Female
  Weight: 95.2 kg

DRUGS (18)
  1. RAPAMUNE [Suspect]
     Indication: PROPHYLAXIS AGAINST TRANSPLANT REJECTION
     Dosage: SEE IMAGE
     Route: 048
     Dates: start: 20050121, end: 20050101
  2. RAPAMUNE [Suspect]
     Indication: PROPHYLAXIS AGAINST TRANSPLANT REJECTION
     Dosage: SEE IMAGE
     Route: 048
     Dates: start: 20050101
  3. RENAGEL (SEVELAMER) [Concomitant]
  4. ZOCOR [Concomitant]
  5. ZOLOFT [Concomitant]
  6. NEPHRO-VITE RX (ASCORBIC ACID/FOLIC /VITAMIN B NOS) [Concomitant]
  7. ACTOS [Concomitant]
  8. CALCIUM CARBONATE (CALCIUM CARBONATE) [Concomitant]
  9. ASPIRIN [Concomitant]
  10. BENADRYL [Concomitant]
  11. LANTUS [Concomitant]
  12. TRAVATAN (TRAVOPROST) [Concomitant]
  13. HEPARIN [Concomitant]
  14. ULTRACET [Concomitant]
  15. NEURONTIN [Concomitant]
  16. SYSTANE (POLYETHYLENE GLYCOL/PROPYLENE GLYCOL) [Concomitant]
  17. CELLCEPT [Concomitant]
  18. CORTICOSTEROID NOS (CORTICOSTEROID NOS) [Concomitant]

REACTIONS (10)
  - ANAEMIA [None]
  - ATRIAL FIBRILLATION [None]
  - BLOOD CREATININE INCREASED [None]
  - DIALYSIS [None]
  - HYPOTENSION [None]
  - NAUSEA [None]
  - POST PROCEDURAL HAEMATOMA [None]
  - TACHYCARDIA [None]
  - THROMBOCYTOPENIA [None]
  - VOMITING [None]
